FAERS Safety Report 9168712 (Version 1)
Quarter: 2013Q1

REPORT INFORMATION
  Report Type: Spontaneous
  Country: BE (occurrence: BE)
  Receive Date: 20130318
  Receipt Date: 20130318
  Transmission Date: 20140127
  Serious: Yes (Other)
  Sender: FDA-Public Use
  Company Number: BE-BRISTOL-MYERS SQUIBB COMPANY-17461492

PATIENT
  Age: 70 Year
  Sex: 0

DRUGS (1)
  1. DASATINIB [Suspect]
     Dosage: REDUCED TO 50 MG
     Dates: start: 201210

REACTIONS (4)
  - Cardiac failure [Unknown]
  - Chylothorax [Unknown]
  - Nausea [Unknown]
  - Fatigue [Unknown]
